FAERS Safety Report 25780123 (Version 1)
Quarter: 2025Q3

REPORT INFORMATION
  Report Type: Spontaneous
  Country: US (occurrence: US)
  Receive Date: 20250909
  Receipt Date: 20250909
  Transmission Date: 20251020
  Serious: No
  Sender: MYLAN
  Company Number: US-MYLANLABS-2025M1022682

PATIENT
  Age: 52 Year
  Sex: Male

DRUGS (2)
  1. REVATIO [Suspect]
     Active Substance: SILDENAFIL CITRATE
     Indication: Erectile dysfunction
  2. PROTONIX [Concomitant]
     Active Substance: PANTOPRAZOLE SODIUM
     Indication: Gastrooesophageal reflux disease
     Dosage: 30 MILLIGRAM, BID
     Dates: start: 201412

REACTIONS (3)
  - Amphetamines positive [Not Recovered/Not Resolved]
  - Emotional distress [Unknown]
  - Product quality issue [Unknown]

NARRATIVE: CASE EVENT DATE: 20231101
